FAERS Safety Report 15209364 (Version 1)
Quarter: 2018Q3

REPORT INFORMATION
  Report Type: Spontaneous
  Country: US (occurrence: US)
  Receive Date: 20180629
  Receipt Date: 20180629
  Transmission Date: 20181010
  Serious: Yes (Hospitalization)
  Sender: FDA-Public Use
  Company Number: None

PATIENT
  Age: 66 Year
  Sex: Male
  Weight: 75.3 kg

DRUGS (1)
  1. HYDROCHLOROTHIAZIDE. [Suspect]
     Active Substance: HYDROCHLOROTHIAZIDE
     Indication: HYPERTENSION
     Route: 048
     Dates: start: 20170504, end: 20180306

REACTIONS (5)
  - Abdominal pain [None]
  - Hyponatraemia [None]
  - Hypokalaemia [None]
  - Nausea [None]
  - Hypomagnesaemia [None]

NARRATIVE: CASE EVENT DATE: 20180306
